FAERS Safety Report 5136972-X (Version None)
Quarter: 2006Q4

REPORT INFORMATION
  Report Type: 
  Country: None (occurrence: None)
  Receive Date: 20061030
  Receipt Date: 20061019
  Transmission Date: 20070319
  Serious: Yes (Death)
  Sender: FDA-Public Use
  Company Number: US-JNJFOC-20061004405

PATIENT
  Sex: Female

DRUGS (18)
  1. INFLIXIMAB [Suspect]
     Indication: RHEUMATOID ARTHRITIS
     Route: 042
  2. METHOTREXATE SODIUM [Concomitant]
  3. PREDNISONE TAB [Concomitant]
  4. SULFASALOZINE [Concomitant]
  5. LODINE [Concomitant]
  6. PRILOSEC [Concomitant]
  7. ALLEGRA [Concomitant]
  8. MYCELEX [Concomitant]
  9. NEURONTIN [Concomitant]
     Dosage: 600 MG 6 TABLETS DAILY
  10. CYMBALTA [Concomitant]
  11. QUININE SULFATE [Concomitant]
  12. LASIX [Concomitant]
  13. ROZEREM [Concomitant]
  14. FOLIC ACID [Concomitant]
  15. PREMPRO [Concomitant]
  16. METHADONE HCL [Concomitant]
  17. SPIRIVA [Concomitant]
  18. TARKA [Concomitant]

REACTIONS (1)
  - LUNG NEOPLASM MALIGNANT [None]
